FAERS Safety Report 19230635 (Version 1)
Quarter: 2021Q2

REPORT INFORMATION
  Report Type: Spontaneous
  Country: US (occurrence: US)
  Receive Date: 20210506
  Receipt Date: 20210506
  Transmission Date: 20210717
  Serious: Yes (Other)
  Sender: FDA-Public Use
  Company Number: None

PATIENT
  Age: 51 Year
  Sex: Female
  Weight: 65.25 kg

DRUGS (1)
  1. NP THYROID [Suspect]
     Active Substance: LEVOTHYROXINE\LIOTHYRONINE
     Indication: HYPOTHYROIDISM
     Dosage: ?          QUANTITY:1 TABLET(S);?
     Route: 048

REACTIONS (12)
  - Swollen tongue [None]
  - Swelling face [None]
  - Drug ineffective [None]
  - Constipation [None]
  - Micturition urgency [None]
  - Peripheral coldness [None]
  - Weight increased [None]
  - Dry skin [None]
  - Fatigue [None]
  - Ovarian cyst [None]
  - Dry mouth [None]
  - Periorbital swelling [None]

NARRATIVE: CASE EVENT DATE: 20210401
